FAERS Safety Report 25803323 (Version 1)
Quarter: 2025Q3

REPORT INFORMATION
  Report Type: Spontaneous
  Country: CN (occurrence: CN)
  Receive Date: 20250915
  Receipt Date: 20250915
  Transmission Date: 20251021
  Serious: Yes (Hospitalization, Other)
  Sender: NOVO NORDISK
  Company Number: CN-NOVOPROD-1515912

PATIENT
  Age: 78 Year
  Sex: Female
  Weight: 60 kg

DRUGS (1)
  1. NOVORAPID [Suspect]
     Active Substance: INSULIN ASPART
     Indication: Type 2 diabetes mellitus
     Dosage: 32 IU, QD (20 UNITS IN THE MORNING AND 12 UNITS IN THE EVENING)

REACTIONS (3)
  - Cervical spinal stenosis [Unknown]
  - Blood glucose fluctuation [Unknown]
  - Drug resistance [Unknown]
